FAERS Safety Report 17413955 (Version 6)
Quarter: 2021Q3

REPORT INFORMATION
  Report Type: Spontaneous
  Country: US (occurrence: US)
  Receive Date: 20200213
  Receipt Date: 20210723
  Transmission Date: 20211014
  Serious: Yes (Other)
  Sender: FDA-Public Use
  Company Number: US-GILEAD-2020-0450648

PATIENT
  Age: 45 Year
  Sex: Male
  Weight: 90.7 kg

DRUGS (50)
  1. VIREAD [Suspect]
     Active Substance: TENOFOVIR DISOPROXIL FUMARATE
     Indication: HIV INFECTION
     Dosage: 300 MG, QD
     Route: 048
     Dates: start: 20140507, end: 2014
  2. TRUVADA [Suspect]
     Active Substance: EMTRICITABINE\TENOFOVIR DISOPROXIL FUMARATE
     Dosage: UNK
     Route: 048
     Dates: start: 200504, end: 201504
  3. LEXIVA [Concomitant]
     Active Substance: FOSAMPRENAVIR CALCIUM
  4. LISINOPRIL. [Concomitant]
     Active Substance: LISINOPRIL
  5. LISINOPRIL HCTZ [Concomitant]
     Active Substance: HYDROCHLOROTHIAZIDE\LISINOPRIL
  6. PREDNISOLONE. [Concomitant]
     Active Substance: PREDNISOLONE
  7. ROLAIDS [CALCIUM CARBONATE;MAGNESIUM HYDROXIDE] [Concomitant]
  8. ZESTRIL [Concomitant]
     Active Substance: LISINOPRIL
  9. VIREAD [Suspect]
     Active Substance: TENOFOVIR DISOPROXIL FUMARATE
     Dosage: UNK
     Route: 048
     Dates: start: 200511, end: 201707
  10. TRUVADA [Suspect]
     Active Substance: EMTRICITABINE\TENOFOVIR DISOPROXIL FUMARATE
     Dosage: UNK
     Route: 048
     Dates: start: 20110402, end: 20150407
  11. PRILOSEC [Concomitant]
     Active Substance: OMEPRAZOLE MAGNESIUM
  12. VITAMIN C [Concomitant]
     Active Substance: ASCORBIC ACID
  13. PENICILLIN [BENZYLPENICILLIN POTASSIUM;BENZYLPENICILLIN SODIUM] [Concomitant]
     Active Substance: PENICILLIN G POTASSIUM\PENICILLIN G SODIUM
  14. CYCLOPHOSPHAMIDE. [Concomitant]
     Active Substance: CYCLOPHOSPHAMIDE
  15. TRUVADA [Suspect]
     Active Substance: EMTRICITABINE\TENOFOVIR DISOPROXIL FUMARATE
     Dosage: UNK
     Route: 048
     Dates: start: 2005, end: 201707
  16. BIKTARVY [Concomitant]
     Active Substance: BICTEGRAVIR SODIUM\EMTRICITABINE\TENOFOVIR ALAFENAMIDE FUMARATE
  17. EPIVIR [Concomitant]
     Active Substance: LAMIVUDINE
  18. PERIDEX [CHLORHEXIDINE GLUCONATE] [Concomitant]
  19. ACULAR [Concomitant]
     Active Substance: KETOROLAC TROMETHAMINE
  20. TIVICAY [Concomitant]
     Active Substance: DOLUTEGRAVIR SODIUM
  21. AMOXICILLIN. [Concomitant]
     Active Substance: AMOXICILLIN
  22. CORTISONE [Concomitant]
     Active Substance: CORTISONE
  23. LASIX [Concomitant]
     Active Substance: FUROSEMIDE
  24. TYLENOL [Concomitant]
     Active Substance: ACETAMINOPHEN
  25. VIREAD [Suspect]
     Active Substance: TENOFOVIR DISOPROXIL FUMARATE
     Dosage: UNK
     Route: 048
     Dates: start: 20140507, end: 20170605
  26. TRUVADA [Suspect]
     Active Substance: EMTRICITABINE\TENOFOVIR DISOPROXIL FUMARATE
     Indication: HIV INFECTION
     Dosage: 1 DOSAGE FORM, QD
     Route: 048
     Dates: start: 20110402, end: 201409
  27. ZIAGEN [Concomitant]
     Active Substance: ABACAVIR SULFATE
  28. DOLUTEGRAVIR [Concomitant]
     Active Substance: DOLUTEGRAVIR
  29. LAMIVUDINE. [Concomitant]
     Active Substance: LAMIVUDINE
  30. AMPICILLIN [Concomitant]
     Active Substance: AMPICILLIN
  31. BACTRIM [Concomitant]
     Active Substance: SULFAMETHOXAZOLE\TRIMETHOPRIM
  32. PREDNISONE. [Concomitant]
     Active Substance: PREDNISONE
  33. RANITIDINE. [Concomitant]
     Active Substance: RANITIDINE
  34. VIREAD [Suspect]
     Active Substance: TENOFOVIR DISOPROXIL FUMARATE
     Indication: HEPATITIS B
     Dosage: 300 MG, QOD
     Route: 048
     Dates: start: 2014, end: 20170605
  35. DESCOVY [Concomitant]
     Active Substance: EMTRICITABINE\TENOFOVIR ALAFENAMIDE FUMARATE
  36. OPTICROM [Concomitant]
     Active Substance: CROMOLYN SODIUM
  37. CEFADROXIL. [Concomitant]
     Active Substance: CEFADROXIL
  38. AZITHROMYCIN ANHYDROUS. [Concomitant]
     Active Substance: AZITHROMYCIN ANHYDROUS
  39. ACETAMINOPHEN. [Concomitant]
     Active Substance: ACETAMINOPHEN
  40. VIREAD [Suspect]
     Active Substance: TENOFOVIR DISOPROXIL FUMARATE
     Dosage: UNK
     Route: 048
     Dates: start: 201405, end: 201707
  41. BARACLUDE [Concomitant]
     Active Substance: ENTECAVIR
  42. FAMOTIDINE. [Concomitant]
     Active Substance: FAMOTIDINE
  43. OMEPRAZOLE. [Concomitant]
     Active Substance: OMEPRAZOLE
  44. ZANTAC [Concomitant]
     Active Substance: RANITIDINE HYDROCHLORIDE
  45. ZESTORETIC [Concomitant]
     Active Substance: HYDROCHLOROTHIAZIDE\LISINOPRIL
  46. CROMOLYN SODIUM. [Concomitant]
     Active Substance: CROMOLYN SODIUM
  47. TRUVADA [Suspect]
     Active Substance: EMTRICITABINE\TENOFOVIR DISOPROXIL FUMARATE
     Indication: HEPATITIS B
     Dosage: 1 DOSAGE FORM, Q3DAYS
     Route: 048
     Dates: start: 2014, end: 20150407
  48. NORVIR [Concomitant]
     Active Substance: RITONAVIR
  49. BENZONATATE. [Concomitant]
     Active Substance: BENZONATATE
  50. IBUPROFEN. [Concomitant]
     Active Substance: IBUPROFEN

REACTIONS (13)
  - Chronic kidney disease [Not Recovered/Not Resolved]
  - Renal failure [Unknown]
  - Bone density decreased [Unknown]
  - Pain [Unknown]
  - Tooth loss [Unknown]
  - Anhedonia [Unknown]
  - Economic problem [Unknown]
  - Chronic kidney disease [Unknown]
  - Acquired cystic kidney disease [Unknown]
  - Polyarteritis nodosa [Unknown]
  - Emotional distress [Unknown]
  - Bone loss [Not Recovered/Not Resolved]
  - Anxiety [Unknown]

NARRATIVE: CASE EVENT DATE: 20140415
